FAERS Safety Report 7310190-9 (Version None)
Quarter: 2011Q1

REPORT INFORMATION
  Report Type: 
  Country: None (occurrence: None)
  Receive Date: 20110224
  Receipt Date: 20110217
  Transmission Date: 20110831
  Serious: Yes (Life-Threatening, Hospitalization, Other)
  Sender: FDA-Public Use
  Company Number: FR-ASTELLAS-2011EU000875

PATIENT
  Sex: Male

DRUGS (4)
  1. PROGRAF [Suspect]
     Indication: HEART TRANSPLANT
     Dosage: 1 MG, BID
     Route: 065
  2. PROGRAF [Suspect]
     Dosage: 1.5 MG, UNKNOWN/D
     Route: 065
  3. PROGRAF [Suspect]
     Dosage: 1 MG, BID
     Route: 065
     Dates: start: 20110217
  4. CERTICAN [Concomitant]
     Dosage: UNK
     Route: 065

REACTIONS (7)
  - H1N1 INFLUENZA [None]
  - STREPTOCOCCAL SEPSIS [None]
  - SHOCK [None]
  - MULTI-ORGAN FAILURE [None]
  - RESPIRATORY FAILURE [None]
  - RENAL FAILURE [None]
  - DIARRHOEA [None]
